FAERS Safety Report 12138746 (Version 1)
Quarter: 2016Q1

REPORT INFORMATION
  Report Type: Spontaneous
  Country: US (occurrence: US)
  Receive Date: 20160302
  Receipt Date: 20160302
  Transmission Date: 20160526
  Serious: Yes (Other)
  Sender: FDA-Public Use
  Company Number: US-JNJFOC-20160300690

PATIENT
  Sex: Male

DRUGS (1)
  1. IMBRUVICA [Suspect]
     Active Substance: IBRUTINIB
     Indication: CHRONIC LYMPHOCYTIC LEUKAEMIA
     Route: 065

REACTIONS (5)
  - Haemothorax [Unknown]
  - Photosensitivity reaction [Not Recovered/Not Resolved]
  - Lymphadenopathy [Recovered/Resolved]
  - Asthenia [Unknown]
  - Fatigue [Unknown]
